FAERS Safety Report 17860561 (Version 2)
Quarter: 2020Q2

REPORT INFORMATION
  Report Type: Spontaneous
  Country: GB (occurrence: GB)
  Receive Date: 20200604
  Receipt Date: 20200608
  Transmission Date: 20200714
  Serious: Yes (Other)
  Sender: FDA-Public Use
  Company Number: GB-PFIZER INC-2020216026

PATIENT
  Age: 21 Year
  Sex: Male

DRUGS (2)
  1. SIMPONI [Concomitant]
     Active Substance: GOLIMUMAB
  2. METHOTREXATE SODIUM. [Suspect]
     Active Substance: METHOTREXATE SODIUM
     Dosage: UNK

REACTIONS (7)
  - Pharyngeal disorder [Unknown]
  - Laryngeal pain [Unknown]
  - Bone pain [Unknown]
  - Malaise [Unknown]
  - Amnesia [Unknown]
  - Autism spectrum disorder [Unknown]
  - Feeling cold [Unknown]
